FAERS Safety Report 5936370-2 (Version None)
Quarter: 2008Q4

REPORT INFORMATION
  Report Type: 
  Country: None (occurrence: None)
  Receive Date: 20081030
  Receipt Date: 20081022
  Transmission Date: 20090506
  Serious: Yes (Hospitalization)
  Sender: FDA-Public Use
  Company Number: FR-ASTRAZENECA-2008CG01558

PATIENT
  Sex: Female

DRUGS (3)
  1. CANDESARTAN CILEXETIL [Suspect]
     Indication: CARDIAC FAILURE
     Route: 048
  2. HYDROCORTISONE [Interacting]
     Indication: ADRENALECTOMY
  3. FLUDROCORTISONE ACETATE [Interacting]
     Indication: ADRENALECTOMY

REACTIONS (2)
  - CARDIAC FAILURE ACUTE [None]
  - DRUG INTERACTION [None]
